FAERS Safety Report 19043085 (Version 1)
Quarter: 2021Q1

REPORT INFORMATION
  Report Type: Spontaneous
  Country: US (occurrence: US)
  Receive Date: 20210322
  Receipt Date: 20210322
  Transmission Date: 20210420
  Serious: No
  Sender: FDA-Public Use
  Company Number: None

PATIENT
  Age: 88 Year
  Sex: Male

DRUGS (1)
  1. IMATINIB MES TAB 400MG [Suspect]
     Active Substance: IMATINIB MESYLATE
     Route: 048
     Dates: start: 202101

REACTIONS (4)
  - Arthralgia [None]
  - Eye swelling [None]
  - Fatigue [None]
  - Chest discomfort [None]

NARRATIVE: CASE EVENT DATE: 20210305
